FAERS Safety Report 13189852 (Version 2)
Quarter: 2017Q1

REPORT INFORMATION
  Report Type: Spontaneous
  Country: US (occurrence: US)
  Receive Date: 20170206
  Receipt Date: 20170315
  Transmission Date: 20170428
  Serious: No
  Sender: FDA-Public Use
  Company Number: PHEH2017US003637

PATIENT
  Sex: Female

DRUGS (1)
  1. AFINITOR [Suspect]
     Active Substance: EVEROLIMUS
     Indication: GENITAL NEOPLASM MALIGNANT FEMALE
     Dosage: 5 MG, QD
     Route: 048
     Dates: start: 20150704

REACTIONS (1)
  - Therapeutic response decreased [Unknown]
